FAERS Safety Report 9278614 (Version 1)
Quarter: 2012Q4

REPORT INFORMATION
  Report Type: Spontaneous
  Country: IT (occurrence: None)
  Receive Date: 20121109
  Receipt Date: 20121109
  Transmission Date: 20130627
  Serious: Yes (Hospitalization)
  Sender: FDA-Public Use
  Company Number: 2012S1000742

PATIENT
  Age: 74 Year
  Sex: Male

DRUGS (2)
  1. CUBICIN [Suspect]
     Indication: ENDOCARDITIS
     Route: 042
     Dates: start: 20120723, end: 20120728
  2. ERTAPENEM (ERTAPENEM) [Suspect]
     Indication: INFECTION
     Route: 042
     Dates: start: 20120721, end: 20120728

REACTIONS (7)
  - Haemorrhage [None]
  - Hypoxia [None]
  - Generalised erythema [None]
  - Renal failure acute [None]
  - Eosinophilia [None]
  - Face oedema [None]
  - Pyrexia [None]
